FAERS Safety Report 24108186 (Version 1)
Quarter: 2024Q3

REPORT INFORMATION
  Report Type: Spontaneous
  Country: US (occurrence: US)
  Receive Date: 20240718
  Receipt Date: 20240718
  Transmission Date: 20241016
  Serious: No
  Sender: AVERITAS
  Company Number: US-GRUNENTHAL-2024-118988

PATIENT
  Sex: Female

DRUGS (9)
  1. QUTENZA [Suspect]
     Active Substance: CAPSAICIN
     Indication: Breast pain
     Dosage: UNK
     Route: 061
     Dates: start: 20240411, end: 20240411
  2. QUTENZA [Suspect]
     Active Substance: CAPSAICIN
     Indication: Back pain
  3. TRAMADOL [Concomitant]
     Active Substance: TRAMADOL\TRAMADOL HYDROCHLORIDE
     Indication: Product used for unknown indication
     Dosage: UNK, AS NEEDED
     Route: 065
  4. CLONAZEPAM [Concomitant]
     Active Substance: CLONAZEPAM
     Indication: Product used for unknown indication
     Dosage: 1 MILLIGRAM, 1/DAY
     Route: 065
  5. ALLEGRA [Concomitant]
     Active Substance: FEXOFENADINE HYDROCHLORIDE
     Indication: Hypersensitivity
     Dosage: UNK
     Route: 065
  6. UNSPECIFIED INGREDIENT [Concomitant]
     Active Substance: UNSPECIFIED INGREDIENT
     Indication: Asthma
     Dosage: UNK
     Route: 065
  7. ACRIVASTINE [Concomitant]
     Active Substance: ACRIVASTINE
     Indication: Product used for unknown indication
     Dosage: UNK
     Route: 065
     Dates: start: 20240415
  8. UNSPECIFIED INGREDIENT [Concomitant]
     Active Substance: UNSPECIFIED INGREDIENT
     Indication: Pain
     Dosage: UNK
     Route: 065
  9. LIDOCAINE [Concomitant]
     Active Substance: LIDOCAINE
     Indication: Pain
     Dosage: UNK
     Route: 065

REACTIONS (8)
  - Accidental exposure to product [Recovered/Resolved]
  - Dry throat [Recovered/Resolved]
  - Oropharyngeal pain [Recovered/Resolved]
  - Productive cough [Recovered/Resolved]
  - Pruritus [Recovered/Resolved]
  - Dyspepsia [Recovered/Resolved]
  - Headache [Recovered/Resolved]
  - Dysuria [Recovered/Resolved]
